FAERS Safety Report 22155265 (Version 1)
Quarter: 2023Q1

REPORT INFORMATION
  Report Type: Spontaneous
  Country: US (occurrence: None)
  Receive Date: 20230328
  Receipt Date: 20230328
  Transmission Date: 20230418
  Serious: Yes (Hospitalization, Other)
  Sender: FDA-Public Use
  Company Number: None

PATIENT
  Age: 70 Year
  Sex: Female
  Weight: 50.8 kg

DRUGS (31)
  1. METFORMIN [Suspect]
     Active Substance: METFORMIN HYDROCHLORIDE
     Indication: Depression
     Dosage: FREQUENCY : AT BEDTIME;?
     Route: 048
     Dates: start: 2008, end: 202303
  2. METFORMIN [Suspect]
     Active Substance: METFORMIN HYDROCHLORIDE
     Indication: Nervous system disorder
  3. METFORMIN [Suspect]
     Active Substance: METFORMIN HYDROCHLORIDE
     Indication: Sleep disorder
  4. TRAZODONE [Suspect]
     Active Substance: TRAZODONE HYDROCHLORIDE
  5. QUETIAPINE [Suspect]
     Active Substance: QUETIAPINE
     Indication: Depression
     Dosage: FREQUENCY : AT BEDTIME;?
     Route: 048
     Dates: start: 2008, end: 202303
  6. QUETIAPINE [Suspect]
     Active Substance: QUETIAPINE
  7. QUETIAPINE [Suspect]
     Active Substance: QUETIAPINE
  8. QUETIAPINE [Suspect]
     Active Substance: QUETIAPINE
  9. QUETIAPINE [Suspect]
     Active Substance: QUETIAPINE
  10. QUETIAPINE [Suspect]
     Active Substance: QUETIAPINE
  11. QUETIAPINE [Suspect]
     Active Substance: QUETIAPINE
  12. QUETIAPINE [Suspect]
     Active Substance: QUETIAPINE
  13. QUETIAPINE [Suspect]
     Active Substance: QUETIAPINE
  14. TYLENOL [Concomitant]
     Active Substance: ACETAMINOPHEN
  15. ONE-A-DAY NOS [Concomitant]
     Active Substance: MINERALS\VITAMINS
  16. STOOL SOFTENER (DOCUSATE) [Concomitant]
     Active Substance: DOCUSATE
  17. Vapo Rub [Concomitant]
  18. ICE COLD ANALGESIC GEL [Concomitant]
     Active Substance: CAMPHOR (SYNTHETIC)\MENTHOL
  19. GAS RELIEF [Concomitant]
     Active Substance: DIMETHICONE
  20. Cortizone 10 intensive healing formula [Concomitant]
  21. Systane Lubricant eyedrop for dry eye [Concomitant]
  22. Systane Gel [Concomitant]
  23. CARVEDILOL [Concomitant]
     Active Substance: CARVEDILOL
  24. OMEPRAZOLE [Concomitant]
     Active Substance: OMEPRAZOLE
  25. RIVASTIGMINE [Concomitant]
     Active Substance: RIVASTIGMINE
  26. HYDRALAZINE [Concomitant]
     Active Substance: HYDRALAZINE HYDROCHLORIDE
  27. LISINOPRIL [Concomitant]
     Active Substance: LISINOPRIL
  28. AMLODIPINE BESYLATE [Concomitant]
     Active Substance: AMLODIPINE BESYLATE
  29. SERTRALINE [Concomitant]
     Active Substance: SERTRALINE HYDROCHLORIDE
  30. DORZOLAMIDE\TIMOLOL [Concomitant]
     Active Substance: DORZOLAMIDE\TIMOLOL
  31. TRAVOPROST [Concomitant]
     Active Substance: TRAVOPROST

REACTIONS (15)
  - Alopecia [None]
  - Vision blurred [None]
  - Eye disorder [None]
  - Rash pruritic [None]
  - Headache [None]
  - Skin exfoliation [None]
  - Dizziness [None]
  - Hunger [None]
  - Influenza like illness [None]
  - Fatigue [None]
  - Nervousness [None]
  - Nasopharyngitis [None]
  - Illness [None]
  - Agitation [None]
  - Cerebrovascular accident [None]
